FAERS Safety Report 11470806 (Version 2)
Quarter: 2015Q3

REPORT INFORMATION
  Report Type: Spontaneous
  Country: US (occurrence: US)
  Receive Date: 20150903
  Receipt Date: 20150903
  Transmission Date: 20151125
  Serious: No
  Sender: FDA-Public Use
  Company Number: US-ELI_LILLY_AND_COMPANY-US201111005531

PATIENT
  Age: 51 Year
  Sex: Female
  Weight: 66.21 kg

DRUGS (8)
  1. CYMBALTA [Suspect]
     Active Substance: DULOXETINE HYDROCHLORIDE
     Dosage: 120 MG, QD
     Dates: start: 2010, end: 201109
  2. CYMBALTA [Suspect]
     Active Substance: DULOXETINE HYDROCHLORIDE
     Dosage: 120 MG, QD
     Dates: start: 20111004, end: 201111
  3. CYMBALTA [Suspect]
     Active Substance: DULOXETINE HYDROCHLORIDE
     Dosage: 60 MG, QD
     Dates: start: 201111
  4. NEURONTIN [Concomitant]
     Active Substance: GABAPENTIN
  5. MORPHINE SULFATE. [Concomitant]
     Active Substance: MORPHINE SULFATE
  6. XANAX [Concomitant]
     Active Substance: ALPRAZOLAM
  7. OXYCODONE [Concomitant]
     Active Substance: OXYCODONE
  8. CYMBALTA [Suspect]
     Active Substance: DULOXETINE HYDROCHLORIDE
     Indication: DEPRESSION
     Dosage: 60 MG, QD
     Dates: start: 2008, end: 2009

REACTIONS (6)
  - Head banging [Recovered/Resolved]
  - Abdominal pain upper [Recovered/Resolved]
  - Crying [Recovered/Resolved]
  - Impaired self-care [Recovered/Resolved]
  - Feeling abnormal [Recovered/Resolved]
  - Skin injury [Recovered/Resolved]

NARRATIVE: CASE EVENT DATE: 201109
